FAERS Safety Report 12609533 (Version 3)
Quarter: 2016Q3

REPORT INFORMATION
  Report Type: Spontaneous
  Country: IT (occurrence: IT)
  Receive Date: 20160801
  Receipt Date: 20160909
  Transmission Date: 20161109
  Serious: Yes (Death, Other)
  Sender: FDA-Public Use
  Company Number: IT-PFIZER INC-2016362005

PATIENT
  Age: 55 Year
  Sex: Female

DRUGS (1)
  1. SUNITINIB MALATE. [Suspect]
     Active Substance: SUNITINIB MALATE
     Indication: NEUROENDOCRINE TUMOUR
     Dosage: 37.5 MG, DAILY
     Route: 048
     Dates: start: 20160715, end: 20160725

REACTIONS (4)
  - Intra-abdominal haemorrhage [Fatal]
  - Infusion site extravasation [Fatal]
  - Gastric haemorrhage [Fatal]
  - Hepatic artery aneurysm [Fatal]

NARRATIVE: CASE EVENT DATE: 20160725
